FAERS Safety Report 23503342 (Version 3)
Quarter: 2024Q1

REPORT INFORMATION
  Report Type: Spontaneous
  Country: DE (occurrence: DE)
  Receive Date: 20240208
  Receipt Date: 20240319
  Transmission Date: 20240410
  Serious: Yes (Life-Threatening, Hospitalization)
  Sender: FDA-Public Use
  Company Number: DE-JNJFOC-20240208332

PATIENT
  Sex: Male

DRUGS (4)
  1. CARVYKTI [Suspect]
     Active Substance: CILTACABTAGENE AUTOLEUCEL
     Indication: Plasma cell myeloma
     Dosage: 0.7 MILLION CELLS/KG
     Route: 042
     Dates: start: 20231123, end: 20231123
  2. SULFAMETHOXAZOLE\TRIMETHOPRIM [Concomitant]
     Active Substance: SULFAMETHOXAZOLE\TRIMETHOPRIM
  3. ACYCLOVIR [Concomitant]
     Active Substance: ACYCLOVIR
  4. GRANULOCYTE COLONY-STIMULATING FACTOR NOS [Concomitant]
     Active Substance: GRANULOCYTE COLONY-STIMULATING FACTOR NOS

REACTIONS (4)
  - Bone marrow failure [Recovered/Resolved with Sequelae]
  - Cytopenia [Recovered/Resolved with Sequelae]
  - Septic shock [Recovered/Resolved with Sequelae]
  - Escherichia infection [Unknown]

NARRATIVE: CASE EVENT DATE: 20231220
